FAERS Safety Report 15352832 (Version 1)
Quarter: 2018Q3

REPORT INFORMATION
  Report Type: Spontaneous
  Country: US (occurrence: US)
  Receive Date: 20180905
  Receipt Date: 20180905
  Transmission Date: 20181010
  Serious: No
  Sender: FDA-Public Use
  Company Number: PHEH2018US036326

PATIENT
  Sex: Female

DRUGS (1)
  1. TOBRAMYCIN AND DEXAMETHASONE [Suspect]
     Active Substance: DEXAMETHASONE\TOBRAMYCIN
     Indication: HORDEOLUM
     Dosage: 3X A DAY
     Route: 047
     Dates: start: 20180814

REACTIONS (2)
  - Product quality issue [Unknown]
  - Drug ineffective [Unknown]
